FAERS Safety Report 6746248-2 (Version None)
Quarter: 2010Q2

REPORT INFORMATION
  Report Type: 
  Country: None (occurrence: None)
  Receive Date: 20100528
  Receipt Date: 20090923
  Transmission Date: 20101027
  Serious: No
  Sender: FDA-Public Use
  Company Number: US-ASTRAZENECA-2009SE14878

PATIENT
  Age: 75 Year
  Sex: Male
  Weight: 80.7 kg

DRUGS (1)
  1. PRILOSEC [Suspect]

REACTIONS (1)
  - DRUG INTERACTION [None]
